FAERS Safety Report 9067736 (Version 1)
Quarter: 2013Q1

REPORT INFORMATION
  Report Type: Spontaneous
  Country: US (occurrence: US)
  Receive Date: 20130206
  Receipt Date: 20130206
  Transmission Date: 20140127
  Serious: No
  Sender: FDA-Public Use
  Company Number: US-PFIZER INC-2013048145

PATIENT
  Sex: Female
  Weight: 54.42 kg

DRUGS (1)
  1. ADVIL COLD AND SINUS [Suspect]
     Dosage: UNK
     Route: 048
     Dates: start: 20130204

REACTIONS (2)
  - Overdose [Unknown]
  - Abdominal pain upper [Not Recovered/Not Resolved]
